FAERS Safety Report 16876128 (Version 1)
Quarter: 2019Q4

REPORT INFORMATION
  Report Type: Spontaneous
  Country: US (occurrence: US)
  Receive Date: 20190807
  Receipt Date: 20190807
  Transmission Date: 20200122
  Serious: Yes (Hospitalization)
  Sender: FDA-Public Use
  Company Number: None

PATIENT
  Age: 72 Year
  Sex: Female
  Weight: 84 kg

DRUGS (2)
  1. BEVACIZUMAB (RHUMAB VEGF) [Suspect]
     Active Substance: BEVACIZUMAB
     Dates: end: 20190424
  2. DOXIL [Suspect]
     Active Substance: DOXORUBICIN HYDROCHLORIDE
     Dates: end: 20190706

REACTIONS (15)
  - Anal fissure [None]
  - Haemorrhoids [None]
  - Small intestinal obstruction [None]
  - Blood sodium decreased [None]
  - Decubitus ulcer [None]
  - Ascites [None]
  - Urinary tract infection [None]
  - Hypophagia [None]
  - Disease progression [None]
  - Malnutrition [None]
  - Diarrhoea [None]
  - Hypotension [None]
  - Large intestinal obstruction [None]
  - Tachycardia [None]
  - Gastrointestinal carcinoma [None]

NARRATIVE: CASE EVENT DATE: 20190730
